FAERS Safety Report 9690445 (Version 3)
Quarter: 2013Q4

REPORT INFORMATION
  Report Type: Report from Study
  Country: NL (occurrence: NL)
  Receive Date: 20131115
  Receipt Date: 20131118
  Transmission Date: 20140711
  Serious: Yes (Death, Hospitalization)
  Sender: FDA-Public Use
  Company Number: NL-ROCHE-1252695

PATIENT
  Age: 75 Year
  Sex: Female
  Weight: 136 kg

DRUGS (54)
  1. RHUPH20/RITUXIMAB [Suspect]
     Indication: DIFFUSE LARGE B-CELL LYMPHOMA
     Dosage: LAST DOSE PRIOR TO SAE: 12/JUL/2013, 01/AUG/2013
     Route: 058
     Dates: start: 20130613, end: 20130814
  2. RITUXIMAB [Suspect]
     Indication: DIFFUSE LARGE B-CELL LYMPHOMA
     Route: 042
     Dates: start: 20130613
  3. CYCLOPHOSPHAMIDE [Suspect]
     Indication: DIFFUSE LARGE B-CELL LYMPHOMA
     Dosage: LAST DOSE PRIOR TO SAE: 12/JUL/2013
     Route: 065
     Dates: start: 20130627
  4. CYCLOPHOSPHAMIDE [Suspect]
     Route: 065
     Dates: start: 20130613
  5. CYCLOPHOSPHAMIDE [Suspect]
     Route: 065
     Dates: start: 20130712
  6. DOXORUBICIN [Suspect]
     Indication: DIFFUSE LARGE B-CELL LYMPHOMA
     Dosage: LAST DOSE PRIOR TO SAE: 12/JUL/2013
     Route: 065
     Dates: start: 20130627
  7. DOXORUBICIN [Suspect]
     Route: 065
     Dates: start: 20130613
  8. DOXORUBICIN [Suspect]
     Route: 065
     Dates: start: 20130712
  9. VINCRISTINE [Suspect]
     Indication: DIFFUSE LARGE B-CELL LYMPHOMA
     Dosage: LAST DOSE PRIOR TO SAE: 12/JUL/2013
     Route: 065
     Dates: start: 20130627
  10. VINCRISTINE [Suspect]
     Route: 065
     Dates: start: 20130613
  11. VINCRISTINE [Suspect]
     Route: 065
     Dates: start: 20130712
  12. PREDNISONE [Suspect]
     Indication: DIFFUSE LARGE B-CELL LYMPHOMA
     Dosage: LAST DOSE PRIOR TO SAE: 12/JUL/2013
     Route: 065
     Dates: start: 20130627
  13. PREDNISONE [Suspect]
     Route: 065
     Dates: start: 20130613
  14. PREDNISONE [Suspect]
     Route: 048
     Dates: start: 20130605, end: 20130626
  15. PREDNISONE [Suspect]
     Route: 065
     Dates: start: 20130712
  16. PREDNISONE [Suspect]
     Route: 048
     Dates: start: 20130723
  17. AMITRIPTYLINE [Concomitant]
     Route: 065
     Dates: start: 20130621
  18. AMITRIPTYLINE [Concomitant]
     Route: 048
     Dates: start: 20130215, end: 20130826
  19. SINTROM [Concomitant]
     Route: 065
     Dates: start: 20130724
  20. SINTROM [Concomitant]
     Route: 065
     Dates: start: 20130427
  21. NOVORAPID [Concomitant]
     Route: 058
     Dates: start: 20130605, end: 20130624
  22. MACROGOL [Concomitant]
     Route: 065
     Dates: start: 20130604
  23. MACROGOL [Concomitant]
     Route: 048
     Dates: start: 20130530, end: 20130826
  24. SPIRONOLACTON [Concomitant]
     Dosage: DAILY
     Route: 048
     Dates: start: 20130215
  25. SPIRONOLACTON [Concomitant]
     Route: 048
     Dates: start: 20130225, end: 20130826
  26. LISINOPRIL [Concomitant]
     Route: 065
     Dates: start: 20130131, end: 20130826
  27. CODEINE PHOSPHATE [Concomitant]
     Route: 065
     Dates: start: 20130724, end: 20130815
  28. KALIUMCHLORIDE [Concomitant]
     Route: 048
     Dates: start: 20130726, end: 20130815
  29. OXYCODON [Concomitant]
     Route: 048
     Dates: start: 20130608, end: 20130620
  30. OXYCODON [Concomitant]
     Route: 048
     Dates: start: 20130607, end: 20130621
  31. ALLOPURINOL [Concomitant]
     Route: 048
     Dates: start: 20130605, end: 20130618
  32. SINTROM MITIS [Concomitant]
     Route: 048
     Dates: start: 20130427, end: 20130825
  33. PEGFILGRASTIM [Concomitant]
     Route: 058
     Dates: start: 20130614, end: 20130614
  34. RESONIUM [Concomitant]
     Route: 048
     Dates: start: 20130605, end: 20130621
  35. FUROSEMIDE [Concomitant]
     Route: 048
     Dates: start: 20130615, end: 20130824
  36. FUROSEMIDE [Concomitant]
     Route: 065
     Dates: start: 20130822, end: 20130822
  37. FUROSEMIDE [Concomitant]
     Route: 065
     Dates: start: 20130824, end: 20130825
  38. CIPROFLOXACINE [Concomitant]
     Route: 048
     Dates: start: 20130621, end: 20130627
  39. HALDOL [Concomitant]
     Route: 048
     Dates: start: 20130619, end: 20130624
  40. LORAZEPAM [Concomitant]
     Route: 048
     Dates: start: 20130620, end: 20130624
  41. MORPHINE SULPHATE SR [Concomitant]
     Route: 048
     Dates: start: 20130604, end: 20130605
  42. MORPHINE SULPHATE SR [Concomitant]
     Route: 058
     Dates: start: 20130826
  43. FLUCLOXACILLINE [Concomitant]
     Route: 048
     Dates: start: 20130710, end: 20130718
  44. AMOXICILLINE [Concomitant]
     Route: 048
     Dates: start: 20130726, end: 20130726
  45. FRAXIPARINE [Concomitant]
     Route: 058
     Dates: start: 20130724, end: 20130727
  46. FRAXIPARINE [Concomitant]
     Route: 065
     Dates: start: 20130816
  47. PARACETAMOL [Concomitant]
     Route: 065
     Dates: start: 20130723, end: 20130815
  48. PARACETAMOL [Concomitant]
     Route: 048
     Dates: start: 20130604
  49. OXYNORM [Concomitant]
     Route: 065
     Dates: start: 20130723, end: 20130815
  50. OXYNORM [Concomitant]
     Route: 048
     Dates: start: 20130530
  51. METOCLOPRAMIDE [Concomitant]
     Dosage: DAILY
     Route: 065
     Dates: start: 20130723, end: 20130815
  52. METOCLOPRAMIDE [Concomitant]
     Route: 065
     Dates: start: 20130727
  53. METOCLOPRAMIDE [Concomitant]
     Route: 048
     Dates: start: 20130627, end: 20130815
  54. VITAMIN K [Concomitant]
     Route: 048
     Dates: start: 20130815, end: 20130826

REACTIONS (2)
  - Malaise [Fatal]
  - Febrile neutropenia [Recovered/Resolved]
